FAERS Safety Report 8307243-5 (Version None)
Quarter: 2012Q1

REPORT INFORMATION
  Report Type: 
  Country: None (occurrence: None)
  Receive Date: 20120327
  Receipt Date: 20090812
  Transmission Date: 20120608
  Serious: Yes (Other)
  Sender: FDA-Public Use
  Company Number: PHEH2009US07247

PATIENT
  Age: 60 Year
  Sex: Female

DRUGS (1)
  1. GLEEVEC [Suspect]
     Indication: CHRONIC MYELOID LEUKAEMIA
     Dosage: 400 MG, QD, ORAL
     Route: 048
     Dates: start: 20090122, end: 20090101

REACTIONS (7)
  - RASH [None]
  - SUNBURN [None]
  - SKIN EXFOLIATION [None]
  - BURNING SENSATION [None]
  - LIP SWELLING [None]
  - PRURITUS [None]
  - LIP EXFOLIATION [None]
